FAERS Safety Report 5393493-7 (Version None)
Quarter: 2007Q3

REPORT INFORMATION
  Report Type: 
  Country: None (occurrence: None)
  Receive Date: 20070723
  Receipt Date: 20060627
  Transmission Date: 20080115
  Serious: No
  Sender: FDA-Public Use
  Company Number: A0610515A

PATIENT
  Sex: Male

DRUGS (3)
  1. AVANDIA [Suspect]
     Dosage: 4MG PER DAY
     Route: 048
     Dates: start: 20060301
  2. LISINOPRIL [Concomitant]
  3. COUMADIN [Concomitant]

REACTIONS (4)
  - ASTHENIA [None]
  - BLOOD CHOLESTEROL ABNORMAL [None]
  - HEADACHE [None]
  - NAUSEA [None]
